FAERS Safety Report 15183661 (Version 1)
Quarter: 2018Q3

REPORT INFORMATION
  Report Type: Spontaneous
  Country: US (occurrence: US)
  Receive Date: 20180625
  Receipt Date: 20180625
  Transmission Date: 20181010
  Serious: Yes (Other)
  Sender: FDA-Public Use
  Company Number: None

PATIENT
  Age: 71 Year
  Sex: Male

DRUGS (1)
  1. METFORMIN [Suspect]
     Active Substance: METFORMIN HYDROCHLORIDE
     Indication: DIABETES MELLITUS
     Route: 048
     Dates: end: 20180531

REACTIONS (6)
  - PCO2 decreased [None]
  - Anion gap increased [None]
  - Vomiting [None]
  - Diarrhoea [None]
  - Lactic acidosis [None]
  - Nausea [None]

NARRATIVE: CASE EVENT DATE: 20180531
